FAERS Safety Report 22273898 (Version 4)
Quarter: 2023Q4

REPORT INFORMATION
  Report Type: Spontaneous
  Country: CA (occurrence: CA)
  Receive Date: 20230502
  Receipt Date: 20231023
  Transmission Date: 20240110
  Serious: No
  Sender: FDA-Public Use
  Company Number: CA-PFIZER INC-202300170374

PATIENT
  Age: 81 Year
  Sex: Female

DRUGS (1)
  1. PREMARIN [Suspect]
     Active Substance: ESTROGENS, CONJUGATED
     Dosage: UNK
     Route: 067
     Dates: start: 2022

REACTIONS (5)
  - Urinary tract infection [Unknown]
  - Vulvovaginal dryness [Unknown]
  - Vaginal disorder [Unknown]
  - Device difficult to use [Unknown]
  - Intentional product misuse [Unknown]
